FAERS Safety Report 5122403-2 (Version None)
Quarter: 2006Q3

REPORT INFORMATION
  Report Type: 
  Country: None (occurrence: None)
  Receive Date: 20060811
  Receipt Date: 20060712
  Transmission Date: 20061208
  Serious: No
  Sender: FDA-Public Use
  Company Number: S06-USA-02726-01

PATIENT
  Age: 70 Year
  Sex: Female

DRUGS (11)
  1. NAMENDA [Suspect]
     Indication: AMNESIA
     Dosage: 10 MG BID PO
     Route: 048
     Dates: start: 20060626
  2. ARICEPT [Suspect]
     Indication: AMNESIA
     Dosage: 5 MG QD PO
     Route: 048
     Dates: start: 20060626
  3. POTASSIUM ACETATE [Concomitant]
  4. IRON [Concomitant]
  5. SOTALOL HYDROCHLORIDE [Concomitant]
  6. PREMARIN [Concomitant]
  7. AVAPRO [Concomitant]
  8. LASIX [Concomitant]
  9. PAXIL [Concomitant]
  10. COUMADIN [Concomitant]
  11. ALLEGRA [Concomitant]

REACTIONS (1)
  - BALANCE DISORDER [None]
